FAERS Safety Report 23831027 (Version 1)
Quarter: 2024Q2

REPORT INFORMATION
  Report Type: Spontaneous
  Country: US (occurrence: US)
  Receive Date: 20240508
  Receipt Date: 20240508
  Transmission Date: 20240716
  Serious: Yes (Other)
  Sender: FDA-Public Use
  Company Number: US-AMGEN-USASP2024087816

PATIENT
  Age: 5 Month
  Sex: Male

DRUGS (1)
  1. INFLIXIMAB [Suspect]
     Active Substance: INFLIXIMAB
     Indication: Antibody test positive
     Dosage: UNK
     Route: 065

REACTIONS (3)
  - Colitis [Unknown]
  - Drug effective for unapproved indication [Unknown]
  - Off label use [Unknown]
